FAERS Safety Report 11056668 (Version 1)
Quarter: 2015Q2

REPORT INFORMATION
  Report Type: Spontaneous
  Country: US (occurrence: US)
  Receive Date: 20150422
  Receipt Date: 20150422
  Transmission Date: 20150821
  Serious: No
  Sender: FDA-Public Use
  Company Number: US-TARO-2015TAR00148

PATIENT
  Age: 22 Year
  Sex: Female
  Weight: 52.15 kg

DRUGS (2)
  1. AVIANE (BAR) [Concomitant]
     Dosage: UNK
     Dates: start: 2012
  2. MICONAZOLE NITRATE VAGINAL CREAM 4% 3 DAY CREAM [Suspect]
     Active Substance: MICONAZOLE NITRATE
     Indication: VULVOVAGINAL MYCOTIC INFECTION
     Dosage: 1 DOSAGE UNITS, ONCE
     Route: 067
     Dates: start: 20150211, end: 20150211

REACTIONS (5)
  - Application site pain [Recovered/Resolved]
  - Insomnia [Unknown]
  - Rash [Unknown]
  - Erythema [Unknown]
  - Application site pruritus [Recovered/Resolved]

NARRATIVE: CASE EVENT DATE: 201502
